FAERS Safety Report 8098856-7 (Version None)
Quarter: 2012Q1

REPORT INFORMATION
  Report Type: 
  Country: None (occurrence: None)
  Receive Date: 20120129
  Receipt Date: 20110926
  Transmission Date: 20120608
  Serious: No
  Sender: FDA-Public Use
  Company Number: US-ABBOTT-11P-163-0857648-00

PATIENT
  Age: 61 Year
  Sex: Female

DRUGS (11)
  1. PREDNISONE TAB [Concomitant]
     Indication: PRODUCT USED FOR UNKNOWN INDICATION
  2. VALIUM [Concomitant]
     Indication: PRODUCT USED FOR UNKNOWN INDICATION
  3. FOLIC ACID [Concomitant]
     Indication: PRODUCT USED FOR UNKNOWN INDICATION
  4. PERCOCET [Concomitant]
     Indication: PRODUCT USED FOR UNKNOWN INDICATION
  5. COMPAZINE [Concomitant]
     Indication: NAUSEA
     Dosage: EVERY 4 TO 6 HOURS, AS NEEDED
  6. BENADRYL [Concomitant]
     Indication: PRODUCT USED FOR UNKNOWN INDICATION
  7. BUMEX [Concomitant]
     Indication: PRODUCT USED FOR UNKNOWN INDICATION
  8. DEMADEX [Concomitant]
     Indication: CARDIAC DISORDER
  9. HUMIRA [Suspect]
     Indication: RHEUMATOID ARTHRITIS
  10. POTASSIUM [Concomitant]
     Indication: PRODUCT USED FOR UNKNOWN INDICATION
  11. ZANTAC [Concomitant]
     Indication: PRODUCT USED FOR UNKNOWN INDICATION

REACTIONS (5)
  - INJECTION SITE PAIN [None]
  - INJECTION SITE HAEMORRHAGE [None]
  - DRUG INEFFECTIVE [None]
  - INJECTION SITE HAEMATOMA [None]
  - RASH [None]
